FAERS Safety Report 16280099 (Version 5)
Quarter: 2020Q1

REPORT INFORMATION
  Report Type: Spontaneous
  Country: US (occurrence: US)
  Receive Date: 20190507
  Receipt Date: 20200305
  Transmission Date: 20200409
  Serious: Yes (Hospitalization, Disabling, Other)
  Sender: FDA-Public Use
  Company Number: US-ASTRAZENECA-2018SF13960

PATIENT
  Age: 19195 Day
  Sex: Male
  Weight: 90.7 kg

DRUGS (54)
  1. BROMOCRIPTINE [Concomitant]
     Active Substance: BROMOCRIPTINE
  2. VIGAMOX [Concomitant]
     Active Substance: MOXIFLOXACIN HYDROCHLORIDE
     Indication: EYE DROP INSTILLATION
     Dates: start: 201304
  3. SERTRALINE [Concomitant]
     Active Substance: SERTRALINE HYDROCHLORIDE
     Indication: MOOD ALTERED
     Dates: start: 201209
  4. FOLIC ACID VITAMIN B VITAMIN C [Concomitant]
  5. OXYCONTIN [Concomitant]
     Active Substance: OXYCODONE HYDROCHLORIDE
  6. PREDNISONE. [Concomitant]
     Active Substance: PREDNISONE
     Indication: STEROID ACTIVITY
     Dates: start: 201201, end: 201203
  7. FERRIC CITRATE [Concomitant]
     Active Substance: TETRAFERRIC TRICITRATE DECAHYDRATE
  8. ACETAMINOPHEN. [Concomitant]
     Active Substance: ACETAMINOPHEN
  9. HYDROMORPHONE [Concomitant]
     Active Substance: HYDROMORPHONE
  10. LORAZEPAM. [Concomitant]
     Active Substance: LORAZEPAM
  11. PERCOCET [Concomitant]
     Active Substance: ACETAMINOPHEN\OXYCODONE HYDROCHLORIDE
  12. PRILOSEC [Suspect]
     Active Substance: OMEPRAZOLE MAGNESIUM
     Route: 048
     Dates: start: 200810, end: 201106
  13. PRILOSEC OTC [Suspect]
     Active Substance: OMEPRAZOLE MAGNESIUM
     Indication: GASTROOESOPHAGEAL REFLUX DISEASE
     Route: 048
     Dates: start: 200810, end: 201106
  14. CARVEDILOL. [Concomitant]
     Active Substance: CARVEDILOL
     Indication: CARDIAC DISORDER
     Dates: start: 201111, end: 201305
  15. LEVAQUIN [Concomitant]
     Active Substance: LEVOFLOXACIN
  16. SORBITOL. [Concomitant]
     Active Substance: SORBITOL
     Indication: DRUG ABUSE
     Dates: start: 201110
  17. FAMOTIDINE. [Concomitant]
     Active Substance: FAMOTIDINE
  18. RENVELA/ RENAGEL [Concomitant]
  19. KETAMINE [Concomitant]
     Active Substance: KETAMINE
  20. DIPHENHYDRAMINE. [Concomitant]
     Active Substance: DIPHENHYDRAMINE
  21. LACTULOSE. [Concomitant]
     Active Substance: LACTULOSE
  22. LIDOCAINE PRILOCAINE [Concomitant]
     Active Substance: LIDOCAINE\PRILOCAINE
     Indication: PAIN
     Dates: start: 201207, end: 201208
  23. NEPHROCAPS [Concomitant]
     Active Substance: ASCORBIC ACID\BIOTIN\CYANOCOBALAMIN\FOLIC ACID\NIACIN\PANTOTHENIC ACID\PYRIDOXINE\RIBOFLAVIN\THIAMINE
  24. MEGACE [Concomitant]
     Active Substance: MEGESTROL ACETATE
  25. PREVACID [Suspect]
     Active Substance: LANSOPRAZOLE
     Route: 065
     Dates: start: 200810, end: 201106
  26. COLACE [Concomitant]
     Active Substance: DOCUSATE SODIUM
  27. DIAZEPAM. [Concomitant]
     Active Substance: DIAZEPAM
  28. HYDROCODONE-ACETAMINOPHEN [Concomitant]
     Active Substance: ACETAMINOPHEN\HYDROCODONE
  29. ONDANSETRON [Concomitant]
     Active Substance: ONDANSETRON
  30. FLAGYL [Concomitant]
     Active Substance: METRONIDAZOLE\METRONIDAZOLE HYDROCHLORIDE
  31. ZOSYN [Concomitant]
     Active Substance: PIPERACILLIN SODIUM\TAZOBACTAM SODIUM
  32. PRILOSEC OTC [Suspect]
     Active Substance: OMEPRAZOLE MAGNESIUM
     Indication: GASTROOESOPHAGEAL REFLUX DISEASE
     Route: 048
     Dates: start: 201006, end: 201106
  33. ZOLPIDEM [Concomitant]
     Active Substance: ZOLPIDEM TARTRATE
     Indication: SLEEP DISORDER
     Dates: start: 201209, end: 201210
  34. KLOR-CON [Concomitant]
     Active Substance: POTASSIUM CHLORIDE
  35. IMDUR [Concomitant]
     Active Substance: ISOSORBIDE MONONITRATE
  36. PRAVASTATIN/ PRAVACHOL [Concomitant]
  37. HEPARIN [Concomitant]
     Active Substance: HEPARIN SODIUM
  38. FERRITIN [Concomitant]
     Active Substance: FERRITIN
  39. CALCIUM ACETATE. [Concomitant]
     Active Substance: CALCIUM ACETATE
     Indication: NUTRITIONAL SUPPLEMENTATION
     Dates: start: 201210, end: 201211
  40. ERGOCALCIFEROL. [Concomitant]
     Active Substance: ERGOCALCIFEROL
  41. CEFTAZIDIME. [Concomitant]
     Active Substance: CEFTAZIDIME
  42. ZOLOFT [Concomitant]
     Active Substance: SERTRALINE HYDROCHLORIDE
  43. ALPRAZOLAM. [Concomitant]
     Active Substance: ALPRAZOLAM
  44. VENTOLIN [Concomitant]
     Active Substance: ALBUTEROL SULFATE
     Indication: INHALATION THERAPY
     Dates: start: 201304
  45. GENTAMICIN. [Concomitant]
     Active Substance: GENTAMICIN
  46. VITAMIN B12 [Concomitant]
     Active Substance: CYANOCOBALAMIN
  47. VENOFER [Concomitant]
     Active Substance: IRON SUCROSE
  48. SENSIPAR [Concomitant]
     Active Substance: CINACALCET HYDROCHLORIDE
  49. FOSRENOL [Concomitant]
     Active Substance: LANTHANUM CARBONATE
  50. CHOLECALCIFEROL [Concomitant]
     Active Substance: CHOLECALCIFEROL
  51. GUAIFENESIN. [Concomitant]
     Active Substance: GUAIFENESIN
  52. BENADRYL [Concomitant]
     Active Substance: DIPHENHYDRAMINE HYDROCHLORIDE
  53. LOPERAMIDE [Concomitant]
     Active Substance: LOPERAMIDE
  54. SIMVASTATIN. [Concomitant]
     Active Substance: SIMVASTATIN

REACTIONS (6)
  - Chronic kidney disease [Not Recovered/Not Resolved]
  - Nephrogenic anaemia [Unknown]
  - Renal failure [Unknown]
  - End stage renal disease [Not Recovered/Not Resolved]
  - Acute kidney injury [Not Recovered/Not Resolved]
  - Hyperparathyroidism secondary [Unknown]

NARRATIVE: CASE EVENT DATE: 20110824
